FAERS Safety Report 5383171-2 (Version None)
Quarter: 2007Q3

REPORT INFORMATION
  Report Type: 
  Country: None (occurrence: None)
  Receive Date: 20070710
  Receipt Date: 20070629
  Transmission Date: 20080115
  Serious: Yes (Hospitalization)
  Sender: FDA-Public Use
  Company Number: US-ELI_LILLY_AND_COMPANY-US200706006637

PATIENT
  Age: 77 Year
  Sex: Female

DRUGS (2)
  1. FORTEO [Suspect]
     Indication: STRESS FRACTURE
     Dates: start: 20070306, end: 20070420
  2. FORTEO [Suspect]
     Dosage: UNK, UNK
     Dates: start: 20070627

REACTIONS (2)
  - PAIN [None]
  - STRESS FRACTURE [None]
